FAERS Safety Report 19559581 (Version 1)
Quarter: 2021Q3

REPORT INFORMATION
  Report Type: Report from Study
  Country: DE (occurrence: DE)
  Receive Date: 20210716
  Receipt Date: 20210716
  Transmission Date: 20211014
  Serious: Yes (Hospitalization)
  Sender: FDA-Public Use
  Company Number: DE-ROCHE-2866525

PATIENT
  Age: 51 Year
  Sex: Female
  Weight: 63.4 kg

DRUGS (2)
  1. BEVACIZUMAB. [Suspect]
     Active Substance: BEVACIZUMAB
     Indication: OVARIAN CANCER RECURRENT
     Dosage: DATE OF LAST DOSE OF ATEZOLIZUMAB PRIOR TO SERIOUS ADVERSE EVENT: 24/JUN/2021
     Route: 042
     Dates: start: 20201106
  2. BLINDED ATEZOLIZUMAB [Suspect]
     Active Substance: ATEZOLIZUMAB
     Indication: OVARIAN CANCER RECURRENT
     Dosage: DATE OF LAST DOSE OF BLINDED ATEZOLIZUMAB PRIOR TO SERIOUS ADVERSE EVENT: 24/JUN/2021
     Route: 042
     Dates: start: 20201106

REACTIONS (1)
  - Renal failure [Unknown]

NARRATIVE: CASE EVENT DATE: 20210707
